FAERS Safety Report 10037924 (Version 1)
Quarter: 2014Q1

REPORT INFORMATION
  Report Type: Spontaneous
  Country: US (occurrence: None)
  Receive Date: 20140306
  Receipt Date: 20140306
  Transmission Date: 20141002
  Serious: Yes (Hospitalization)
  Sender: FDA-Public Use
  Company Number: 163-21880-13080281

PATIENT
  Age: 80 Year
  Sex: Female

DRUGS (12)
  1. REVLIMID [Suspect]
     Indication: PLASMA CELL MYELOMA
     Dosage: 25 MG, 21 IN 21 D, PO
     Route: 048
     Dates: start: 200901
  2. NEURONTIN(GABAPENTIN) [Concomitant]
  3. LUNESTA [Concomitant]
  4. LEXAPRO(ESCITALOPRAM OXALATE) [Concomitant]
  5. RENATE(VITAMINS WITH MINERALS)(UKNOWN) [Concomitant]
  6. ADOXA(DOXYCYCLINE HYDROCHLORIDE) [Concomitant]
  7. TYLX [Concomitant]
  8. KLOR-CON(POTASSIUM CHLORIDE) [Concomitant]
  9. HYZAAR (HYZAAR) [Concomitant]
  10. NORVASC (AMLODIPINE BESILATE) [Concomitant]
  11. LORTAB(VICODIN) [Concomitant]
  12. ZOMETA(ZOLEDRONIC ACID) [Concomitant]

REACTIONS (3)
  - Syncope [None]
  - Neutropenia [None]
  - Asthenia [None]
